FAERS Safety Report 7042598-3 (Version None)
Quarter: 2010Q4

REPORT INFORMATION
  Report Type: 
  Country: None (occurrence: None)
  Receive Date: 20101008
  Receipt Date: 20100930
  Transmission Date: 20110411
  Serious: Yes (Hospitalization, Other)
  Sender: FDA-Public Use
  Company Number: JPI-P-012437

PATIENT
  Age: 41 Year
  Sex: Female
  Weight: 96.6162 kg

DRUGS (8)
  1. XYREM [Suspect]
     Indication: NARCOLEPSY
     Dosage: 4.5 GM (2.25 GM, 2 IN 1 D), ORAL, 9 GM (4.5 GM, 2 IN 1 D), ORAL, 5 GM (2.5 GM, 2 IN 1 D), ORAL
     Route: 048
     Dates: start: 20100802, end: 20100901
  2. XYREM [Suspect]
     Indication: NARCOLEPSY
     Dosage: 4.5 GM (2.25 GM, 2 IN 1 D), ORAL, 9 GM (4.5 GM, 2 IN 1 D), ORAL, 5 GM (2.5 GM, 2 IN 1 D), ORAL
     Route: 048
     Dates: start: 20100902, end: 20100923
  3. XYREM [Suspect]
     Indication: NARCOLEPSY
     Dosage: 4.5 GM (2.25 GM, 2 IN 1 D), ORAL, 9 GM (4.5 GM, 2 IN 1 D), ORAL, 5 GM (2.5 GM, 2 IN 1 D), ORAL
     Route: 048
     Dates: start: 20100924
  4. RISPERIDONE [Suspect]
     Indication: PSYCHOTIC DISORDER
     Dosage: ORAL
     Route: 048
     Dates: start: 20100923, end: 20100923
  5. QUINAPRIL [Concomitant]
  6. TRIAMTERENE AND HYDROCHLOROTHIAZIDE [Concomitant]
  7. GUANFACINE HYDROCHLORIDE [Concomitant]
  8. FLUOXETINE [Concomitant]

REACTIONS (8)
  - CONDITION AGGRAVATED [None]
  - CONVULSION [None]
  - CRYING [None]
  - DEPRESSION [None]
  - ENURESIS [None]
  - HALLUCINATION, AUDITORY [None]
  - MENTAL DISORDER [None]
  - TREMOR [None]
